FAERS Safety Report 9508074 (Version 1)
Quarter: 2013Q3

REPORT INFORMATION
  Report Type: Spontaneous
  Country: GB (occurrence: GB)
  Receive Date: 20130909
  Receipt Date: 20130909
  Transmission Date: 20140515
  Serious: Yes (Hospitalization, Other)
  Sender: FDA-Public Use
  Company Number: PHHY2013GB095916

PATIENT
  Age: 75 Year
  Sex: Female

DRUGS (19)
  1. CIPROFLOXACIN [Suspect]
     Indication: LOWER RESPIRATORY TRACT INFECTION
     Dosage: 500 MG, BID
     Route: 048
     Dates: start: 20121001, end: 20121007
  2. ZINC SULFATE [Interacting]
     Dosage: UNK
  3. NATECAL [Interacting]
     Dosage: 1 DF, QD
  4. TILDIEM [Concomitant]
     Dosage: UNK
  5. NICOTINE [Concomitant]
  6. ATORVASTATIN [Concomitant]
     Dosage: 20 MG, QD
  7. AMITRIPTYLINE [Concomitant]
     Dosage: 50 MG, QD
  8. FUROSEMIDE [Concomitant]
     Dosage: 120 MG, BID (AM + LUNCHTIME)
  9. GABAPENTIN [Concomitant]
     Dosage: UNK (600MG OM 300MG LUNCH + NIGHT )
  10. ASPIRIN [Concomitant]
     Dosage: 75 MG, QD
  11. ALENDRONIC ACID [Concomitant]
     Dosage: 70 MG, UNK
  12. TIOTROPIUM BROMIDE [Concomitant]
     Dosage: 18
  13. SERETIDE [Concomitant]
     Dosage: 2 DF, BID
  14. QUININE SULPHATE [Concomitant]
     Dosage: UNK (AT NIGHT)
  15. TRAMADOL [Concomitant]
     Dosage: UNK (WHEN NECESSARY)
  16. CARBOCISTEINE [Concomitant]
     Dosage: 750
  17. LOSARTAN [Concomitant]
     Dosage: 50 MG, QD
  18. OMEPRAZOLE [Concomitant]
     Dosage: 40 MG, QD
  19. PREDNISOLONE [Concomitant]
     Dosage: UNK

REACTIONS (5)
  - Condition aggravated [Unknown]
  - Renal failure acute [Unknown]
  - Dyspnoea [Unknown]
  - Drug interaction [Unknown]
  - Treatment failure [Recovered/Resolved]
